FAERS Safety Report 17572532 (Version 6)
Quarter: 2020Q4

REPORT INFORMATION
  Report Type: Report from Study
  Country: US (occurrence: US)
  Receive Date: 20200323
  Receipt Date: 20201215
  Transmission Date: 20210113
  Serious: Yes (Other)
  Sender: FDA-Public Use
  Company Number: US-B.I. PHARMACEUTICALS,INC./RIDGEFIELD-2020-MR-006871

PATIENT
  Age: 56 Year
  Sex: Female

DRUGS (3)
  1. OFEV [Suspect]
     Active Substance: NINTEDANIB
     Indication: SYSTEMIC SCLEROSIS PULMONARY
     Route: 048
     Dates: start: 20190822
  2. OFEV [Suspect]
     Active Substance: NINTEDANIB
     Indication: IDIOPATHIC PULMONARY FIBROSIS
     Dosage: 150MG BID
     Route: 048
     Dates: start: 20190901
  3. OFEV [Suspect]
     Active Substance: NINTEDANIB
     Indication: INTERSTITIAL LUNG DISEASE
     Dosage: 100 MG TWICE DAILY
     Route: 048

REACTIONS (12)
  - Nausea [Not Recovered/Not Resolved]
  - Constipation [Recovered/Resolved]
  - Nausea [Not Recovered/Not Resolved]
  - Hypokalaemia [Not Recovered/Not Resolved]
  - Dehydration [Recovered/Resolved]
  - Vomiting [Not Recovered/Not Resolved]
  - Abdominal pain upper [Not Recovered/Not Resolved]
  - Dehydration [Not Recovered/Not Resolved]
  - Diarrhoea [Not Recovered/Not Resolved]
  - Diarrhoea [Not Recovered/Not Resolved]
  - Influenza [Recovered/Resolved]
  - Weight decreased [Not Recovered/Not Resolved]

NARRATIVE: CASE EVENT DATE: 201911
